FAERS Safety Report 7720252-X (Version None)
Quarter: 2011Q3

REPORT INFORMATION
  Report Type: 
  Country: None (occurrence: None)
  Receive Date: 20110825
  Receipt Date: 20110812
  Transmission Date: 20111222
  Serious: Yes (Death)
  Sender: FDA-Public Use
  Company Number: 2011MA012145

PATIENT
  Age: 71 Year
  Sex: Male

DRUGS (8)
  1. ACETYLSALICYLIC ACID SRT [Concomitant]
  2. CLOPIDOGREL [Concomitant]
  3. SIMVASTATIN [Concomitant]
  4. BISOPROLOL FUMARATE [Concomitant]
  5. VENLAFAXINE HYDROCHLORIDE [Suspect]
     Indication: DEPRESSION
     Dosage: 187.5 MG;QD;PO
     Route: 048
  6. OLANZAPINE [Concomitant]
  7. RANITIDINE [Concomitant]
  8. VALPROIC ACID [Concomitant]

REACTIONS (1)
  - TOXICITY TO VARIOUS AGENTS [None]
